FAERS Safety Report 7792951-5 (Version None)
Quarter: 2011Q4

REPORT INFORMATION
  Report Type: 
  Country: None (occurrence: None)
  Receive Date: 20111003
  Receipt Date: 20110923
  Transmission Date: 20120403
  Serious: Yes (Other)
  Sender: FDA-Public Use
  Company Number: PHHY2011AR83703

PATIENT
  Sex: Male

DRUGS (3)
  1. ONBREZ [Suspect]
     Indication: CHRONIC OBSTRUCTIVE PULMONARY DISEASE
     Dosage: 300 UG, UNK
     Dates: start: 20110701
  2. ANTIDEPRESSANTS [Concomitant]
     Indication: DEPRESSION
  3. ANXIOLYTICS [Concomitant]
     Indication: DEPRESSION

REACTIONS (4)
  - THROAT IRRITATION [None]
  - AGITATION [None]
  - BRONCHITIS [None]
  - FATIGUE [None]
